FAERS Safety Report 5569084-1 (Version None)
Quarter: 2007Q4

REPORT INFORMATION
  Report Type: 
  Country: None (occurrence: None)
  Receive Date: 20071220
  Receipt Date: 20070815
  Transmission Date: 20080405
  Serious: No
  Sender: FDA-Public Use
  Company Number: A0661358A

PATIENT
  Sex: Male

DRUGS (20)
  1. AVODART [Suspect]
  2. KEFLEX [Concomitant]
  3. MOTRIN [Concomitant]
  4. BACTRIM [Concomitant]
  5. TETRACYCLINE [Concomitant]
  6. FLAGYL [Concomitant]
  7. BENTYL [Concomitant]
  8. PYRIDIUM [Concomitant]
  9. LIBRAX [Concomitant]
  10. ATIVAN [Concomitant]
  11. DICYCLOMINE [Concomitant]
  12. LEVSIN [Concomitant]
  13. PROSCAR [Concomitant]
  14. HYTRIN [Concomitant]
  15. DITROPAN [Concomitant]
  16. LEVAQUIN [Concomitant]
  17. CARDURA [Concomitant]
  18. DOXAZOSIN MESYLATE [Concomitant]
  19. DETROL [Concomitant]
  20. CINOXACIN [Concomitant]

REACTIONS (1)
  - DRUG INEFFECTIVE [None]
